FAERS Safety Report 7777528-X (Version None)
Quarter: 2011Q3

REPORT INFORMATION
  Report Type: 
  Country: None (occurrence: None)
  Receive Date: 20110926
  Receipt Date: 20110912
  Transmission Date: 20111222
  Serious: Yes (Other)
  Sender: FDA-Public Use
  Company Number: CA-ELI_LILLY_AND_COMPANY-CA201109003223

PATIENT
  Age: 16 Year
  Sex: Female

DRUGS (1)
  1. ZYPREXA ZYDIS [Suspect]
     Dosage: UNK
     Dates: start: 20110501, end: 20110701

REACTIONS (13)
  - LETHARGY [None]
  - BLOOD PRESSURE DECREASED [None]
  - URTICARIA [None]
  - SKIN DISCOLOURATION [None]
  - HYPERSOMNIA [None]
  - LOSS OF CONSCIOUSNESS [None]
  - MUSCLE TWITCHING [None]
  - APHASIA [None]
  - HYPERSENSITIVITY [None]
  - VOMITING [None]
  - AMENORRHOEA [None]
  - CONTUSION [None]
  - MUSCLE RIGIDITY [None]
